FAERS Safety Report 7333192-5 (Version None)
Quarter: 2011Q1

REPORT INFORMATION
  Report Type: 
  Country: None (occurrence: None)
  Receive Date: 20110304
  Receipt Date: 20110222
  Transmission Date: 20110831
  Serious: Yes (Other)
  Sender: FDA-Public Use
  Company Number: CA-JNJFOC-20100301308

PATIENT
  Sex: Male
  Weight: 86.18 kg

DRUGS (9)
  1. STELARA [Suspect]
     Route: 058
  2. TEGRETOL [Concomitant]
     Indication: CONVULSION PROPHYLAXIS
  3. STELARA [Suspect]
     Route: 058
  4. BLOOD THINNERS [Concomitant]
  5. STELARA [Suspect]
     Route: 058
  6. VARENICLINE [Concomitant]
  7. STELARA [Suspect]
     Indication: PSORIASIS
     Route: 058
  8. AGGRENOX [Concomitant]
     Indication: ANTICOAGULANT THERAPY
  9. ANTI-SEIZURE MEDICATION [Concomitant]

REACTIONS (5)
  - NASOPHARYNGITIS [None]
  - MUSCULOSKELETAL STIFFNESS [None]
  - PYREXIA [None]
  - COUGH [None]
  - LYMPHOMA [None]
